FAERS Safety Report 23571747 (Version 1)
Quarter: 2024Q1

REPORT INFORMATION
  Report Type: Spontaneous
  Country: US (occurrence: None)
  Receive Date: 20240227
  Receipt Date: 20240227
  Transmission Date: 20240410
  Serious: Yes (Hospitalization)
  Sender: FDA-Public Use
  Company Number: None

PATIENT
  Age: 74 Year
  Sex: Female
  Weight: 65.25 kg

DRUGS (9)
  1. INSULIN GLARGINE [Suspect]
     Active Substance: INSULIN GLARGINE
     Indication: Diabetes mellitus
     Dosage: OTHER QUANTITY : 14 INJECTION(S);?FREQUENCY : DAILY;?
     Route: 058
     Dates: start: 20231210, end: 20240226
  2. METFORMIN [Concomitant]
  3. GLIPIZIDE [Concomitant]
     Active Substance: GLIPIZIDE
  4. FENOFIBRATE [Concomitant]
     Active Substance: FENOFIBRATE
  5. LOSARTAN [Concomitant]
     Active Substance: LOSARTAN
  6. ATORVASTATIN [Concomitant]
     Active Substance: ATORVASTATIN
  7. AMPLODIPINE [Concomitant]
  8. METOPROLOL [Concomitant]
     Active Substance: METOPROLOL
  9. ASPIRIN [Concomitant]

REACTIONS (20)
  - Pain [None]
  - Diarrhoea [None]
  - Decreased appetite [None]
  - Irritability [None]
  - Dizziness [None]
  - Pyrexia [None]
  - Chills [None]
  - Nausea [None]
  - Vomiting [None]
  - Chills [None]
  - Hyperhidrosis [None]
  - Insomnia [None]
  - Headache [None]
  - Fatigue [None]
  - Asthenia [None]
  - Peripheral swelling [None]
  - Joint swelling [None]
  - Peripheral swelling [None]
  - Discomfort [None]
  - Illness [None]

NARRATIVE: CASE EVENT DATE: 20240105
